FAERS Safety Report 7777391 (Version 4)
Quarter: 2014Q3

REPORT INFORMATION
  Report Type: Spontaneous
  Country: DE (occurrence: DE)
  Receive Date: 20110128
  Receipt Date: 20140729
  Transmission Date: 20150326
  Serious: Yes (Hospitalization)
  Sender: FDA-Public Use
  Company Number: DE-RANBAXY-2011RR-41183

PATIENT
  Age: 75 Year
  Sex: Male
  Weight: 76 kg

DRUGS (3)
  1. PANTOZOL [Concomitant]
     Active Substance: PANTOPRAZOLE SODIUM
     Indication: HELICOBACTER GASTRITIS
     Dosage: 40 MG, BID
     Route: 048
     Dates: start: 20101213
  2. AMOXICILLIN. [Suspect]
     Active Substance: AMOXICILLIN
     Indication: HELICOBACTER GASTRITIS
     Dosage: 1000 MG, BID
     Route: 048
     Dates: start: 20101213, end: 20101227
  3. KLACID [Suspect]
     Active Substance: CLARITHROMYCIN
     Indication: HELICOBACTER GASTRITIS
     Dosage: 500 MG, BID
     Route: 048
     Dates: start: 20101213, end: 20101227

REACTIONS (1)
  - Liver disorder [Recovering/Resolving]

NARRATIVE: CASE EVENT DATE: 20101222
